FAERS Safety Report 8848660 (Version 1)
Quarter: 2012Q4

REPORT INFORMATION
  Report Type: Spontaneous
  Country: IN (occurrence: None)
  Receive Date: 20121015
  Receipt Date: 20121015
  Transmission Date: 20130627
  Serious: Yes (Life-Threatening, Hospitalization)
  Sender: FDA-Public Use
  Company Number: AMLO20120018

PATIENT
  Age: 24 Year
  Sex: Female

DRUGS (1)
  1. AMLODIPINE BESYLATE [Suspect]
     Indication: PRODUCT USED FOR UNKNOWN INDICATION
     Dosage: 280 mg, 56 in 1 D, Oral
     Dates: start: 2012, end: 2012

REACTIONS (22)
  - Intentional overdose [None]
  - Nausea [None]
  - Vomiting [None]
  - Abdominal pain [None]
  - Dyspnoea [None]
  - Heart rate increased [None]
  - Blood pressure decreased [None]
  - Respiratory rate increased [None]
  - Sinus tachycardia [None]
  - Anxiety [None]
  - Oxygen saturation decreased [None]
  - Somnolence [None]
  - Urine output decreased [None]
  - Acute lung injury [None]
  - Toxicity to various agents [None]
  - Suicide attempt [None]
  - Metabolic acidosis [None]
  - Rales [None]
  - Haemoglobin decreased [None]
  - Blood glucose increased [None]
  - Blood urea increased [None]
  - Blood creatinine increased [None]
